FAERS Safety Report 6189654-X (Version None)
Quarter: 2009Q2

REPORT INFORMATION
  Report Type: 
  Country: None (occurrence: None)
  Receive Date: 20090514
  Receipt Date: 20080619
  Transmission Date: 20091009
  Serious: Yes (Hospitalization)
  Sender: FDA-Public Use
  Company Number: US-ASTRAZENECA-2006UW25080

PATIENT
  Age: 17608 Day
  Sex: Female
  Weight: 90.7 kg

DRUGS (12)
  1. SEROQUEL [Suspect]
     Indication: SCHIZOPHRENIA
     Dosage: 400-500 MG
     Route: 048
     Dates: start: 20011109
  2. SEROQUEL [Suspect]
     Route: 048
  3. ZOLOFT [Concomitant]
     Route: 065
  4. XANAX [Concomitant]
     Indication: PANIC DISORDER
     Dosage: 1 MG - 5 MG
     Route: 048
  5. EC-NAPROSYN [Concomitant]
     Indication: HEADACHE
     Route: 065
  6. CELEXA [Concomitant]
     Indication: DEPRESSION
     Dosage: 20 MG - 40 MG
     Route: 048
     Dates: start: 20011109
  7. WELLBUTRIN SR [Concomitant]
     Dosage: 150 MG - 300 MG
     Route: 048
  8. LOTREL [Concomitant]
     Route: 048
  9. CELEBREX [Concomitant]
     Route: 048
  10. AZMACORT [Concomitant]
     Route: 065
  11. ADVAIR HFA [Concomitant]
     Route: 065
  12. ALBUTEROL [Concomitant]
     Route: 065

REACTIONS (6)
  - ANXIETY [None]
  - DIABETES MELLITUS [None]
  - HEADACHE [None]
  - MAJOR DEPRESSION [None]
  - NICOTINE DEPENDENCE [None]
  - PANIC DISORDER [None]
